FAERS Safety Report 4751149-5 (Version None)
Quarter: 2005Q3

REPORT INFORMATION
  Report Type: 
  Country: None (occurrence: None)
  Receive Date: 20050822
  Receipt Date: 20050808
  Transmission Date: 20060218
  Serious: Yes (Hospitalization)
  Sender: FDA-Public Use
  Company Number: 05H-163-0302031-00

PATIENT

DRUGS (2)
  1. HEPARIN SODIUM [Suspect]
     Dosage: 6000 + 2000 UNIT, ONCE, INTRAVENOUS BOLUS  - SEE IMAGE
     Route: 040
     Dates: start: 20050701, end: 20050701
  2. HEPARIN SODIUM [Suspect]
     Dosage: 6000 + 2000 UNIT, ONCE, INTRAVENOUS BOLUS  - SEE IMAGE
     Route: 040
     Dates: start: 20050701, end: 20050701

REACTIONS (3)
  - CHEST PAIN [None]
  - OVERDOSE [None]
  - WRONG TECHNIQUE IN DRUG USAGE PROCESS [None]
